FAERS Safety Report 21389626 (Version 1)
Quarter: 2022Q3

REPORT INFORMATION
  Report Type: Spontaneous
  Country: CA (occurrence: CA)
  Receive Date: 20220929
  Receipt Date: 20220929
  Transmission Date: 20221027
  Serious: Yes (Hospitalization)
  Sender: FDA-Public Use
  Company Number: CA-TEVA-2022-CA-2076806

PATIENT
  Age: 51 Year
  Sex: Male

DRUGS (1)
  1. IBUPROFEN [Suspect]
     Active Substance: IBUPROFEN
     Indication: Product used for unknown indication
     Dosage: AS REQUIRED
     Route: 048

REACTIONS (4)
  - Gastric ulcer [Unknown]
  - Haemoglobin abnormal [Unknown]
  - Red blood cell transfusion [Unknown]
  - Upper gastrointestinal haemorrhage [Unknown]
